FAERS Safety Report 17332124 (Version 3)
Quarter: 2020Q1

REPORT INFORMATION
  Report Type: Report from Study
  Country: US (occurrence: US)
  Receive Date: 20200128
  Receipt Date: 20200323
  Transmission Date: 20200409
  Serious: Yes (Hospitalization, Other)
  Sender: FDA-Public Use
  Company Number: US-ACTELION-A-US2019-198063

PATIENT
  Age: 30 Year
  Sex: Female
  Weight: 64.85 kg

DRUGS (9)
  1. VELETRI [Suspect]
     Active Substance: EPOPROSTENOL
     Dosage: 16 NG/KG, PER MIN
     Route: 042
     Dates: start: 201912
  2. VELETRI [Suspect]
     Active Substance: EPOPROSTENOL
     Dosage: 16.67 NG/KG, PER MIN
     Route: 042
     Dates: start: 20200121
  3. ELIQUIS [Concomitant]
     Active Substance: APIXABAN
  4. VELETRI [Suspect]
     Active Substance: EPOPROSTENOL
     Indication: PULMONARY ARTERIAL HYPERTENSION
     Dosage: 9 NG/KG, PER MIN
     Route: 042
     Dates: start: 20191015
  5. VELETRI [Suspect]
     Active Substance: EPOPROSTENOL
     Dosage: 15.064 NG/KG, PER MIN
     Route: 042
  6. SILDENAFIL CITRATE. [Concomitant]
     Active Substance: SILDENAFIL CITRATE
  7. OPSUMIT [Suspect]
     Active Substance: MACITENTAN
     Indication: PULMONARY ARTERIAL HYPERTENSION
     Dosage: 10 MG, QD
     Route: 048
     Dates: start: 20200213
  8. VELETRI [Suspect]
     Active Substance: EPOPROSTENOL
     Dosage: 17 NG/KG, PER MIN
     Route: 042
     Dates: end: 201912
  9. VELETRI [Suspect]
     Active Substance: EPOPROSTENOL
     Dosage: 20 NG/KG, PER MIN
     Route: 042

REACTIONS (18)
  - Cardiac disorder [Unknown]
  - Gallbladder disorder [Unknown]
  - Liver disorder [Unknown]
  - Lung disorder [Unknown]
  - Pulmonary oedema [Unknown]
  - Cerebrovascular accident [Unknown]
  - Headache [Unknown]
  - Acute right ventricular failure [Unknown]
  - Upper respiratory tract infection [Unknown]
  - Oxygen saturation decreased [Unknown]
  - Adverse event [Unknown]
  - Oxygen consumption increased [Unknown]
  - Pain [Unknown]
  - Pericardial effusion [Unknown]
  - Nausea [Unknown]
  - Pain in jaw [Unknown]
  - Dyspnoea [Unknown]
  - Fluid retention [Unknown]

NARRATIVE: CASE EVENT DATE: 201910
